FAERS Safety Report 20114475 (Version 1)
Quarter: 2021Q4

REPORT INFORMATION
  Report Type: Spontaneous
  Country: US (occurrence: US)
  Receive Date: 20211125
  Receipt Date: 20211125
  Transmission Date: 20220304
  Serious: No
  Sender: FDA-Public Use
  Company Number: US-SA-SAC20211118000083

PATIENT
  Sex: Female

DRUGS (1)
  1. DUPIXENT [Suspect]
     Active Substance: DUPILUMAB
     Indication: Dermatitis atopic
     Dosage: 300 MG, QOW
     Route: 058
     Dates: start: 20201229, end: 202110

REACTIONS (7)
  - Dyspnoea [Unknown]
  - Pruritus [Unknown]
  - Peripheral swelling [Unknown]
  - Lip swelling [Unknown]
  - Hypertension [Unknown]
  - Asthenia [Unknown]
  - Hypersensitivity [Unknown]
